FAERS Safety Report 24691513 (Version 1)
Quarter: 2024Q4

REPORT INFORMATION
  Report Type: Spontaneous
  Country: CA (occurrence: CA)
  Receive Date: 20241203
  Receipt Date: 20241203
  Transmission Date: 20250115
  Serious: Yes (Other)
  Sender: PFIZER
  Company Number: CA-PFIZER INC-202400313175

PATIENT
  Age: 77 Year
  Sex: Female

DRUGS (1)
  1. SOLU-MEDROL [Suspect]
     Active Substance: METHYLPREDNISOLONE SODIUM SUCCINATE
     Dosage: UNK
     Dates: end: 202407

REACTIONS (2)
  - Diarrhoea [Recovering/Resolving]
  - Gastrointestinal ulcer [Recovered/Resolved]

NARRATIVE: CASE EVENT DATE: 20240101
